FAERS Safety Report 23090611 (Version 1)
Quarter: 2023Q4

REPORT INFORMATION
  Report Type: Spontaneous
  Country: US (occurrence: None)
  Receive Date: 20231020
  Receipt Date: 20231020
  Transmission Date: 20240110
  Serious: Yes (Disabling)
  Sender: FDA-Public Use
  Company Number: None

PATIENT
  Age: 78 Year
  Sex: Female
  Weight: 57.6 kg

DRUGS (9)
  1. PROLIA [Suspect]
     Active Substance: DENOSUMAB
     Indication: Osteoporosis
     Dates: start: 20230828
  2. PROTONIX [Concomitant]
     Active Substance: PANTOPRAZOLE SODIUM
  3. FAMOTIDINE [Concomitant]
     Active Substance: FAMOTIDINE
  4. CRESTOR [Concomitant]
     Active Substance: ROSUVASTATIN CALCIUM
  5. CELEBREX [Concomitant]
     Active Substance: CELECOXIB
  6. XANAX [Concomitant]
     Active Substance: ALPRAZOLAM
  7. CALCIUM\VITAMIN D [Concomitant]
     Active Substance: CALCIUM\VITAMIN D
  8. VITAMINS [Concomitant]
     Active Substance: VITAMINS
  9. METAMUCIL [Concomitant]
     Active Substance: PLANTAGO SEED

REACTIONS (9)
  - Injection site erythema [None]
  - Injection site pruritus [None]
  - Dry eye [None]
  - Paraesthesia [None]
  - Rhinorrhoea [None]
  - Throat tightness [None]
  - Dysphagia [None]
  - Nausea [None]
  - Ear congestion [None]

NARRATIVE: CASE EVENT DATE: 20230920
